FAERS Safety Report 6006327-4 (Version None)
Quarter: 2008Q4

REPORT INFORMATION
  Report Type: 
  Country: None (occurrence: None)
  Receive Date: 20081217
  Receipt Date: 20081215
  Transmission Date: 20090506
  Serious: Yes (Death)
  Sender: FDA-Public Use
  Company Number: A0760651A

PATIENT
  Age: 68 Year
  Sex: Female
  Weight: 94 kg

DRUGS (1)
  1. SERETIDE [Suspect]
     Indication: DRUG USE FOR UNKNOWN INDICATION
     Route: 055
     Dates: start: 20080801, end: 20081121

REACTIONS (1)
  - RENAL FAILURE [None]
